FAERS Safety Report 4906157-8 (Version None)
Quarter: 2006Q1

REPORT INFORMATION
  Report Type: 
  Country: None (occurrence: None)
  Receive Date: 20060206
  Receipt Date: 20060118
  Transmission Date: 20060701
  Serious: Yes (Other)
  Sender: FDA-Public Use
  Company Number: 2006-01-1118

PATIENT
  Age: 62 Year
  Sex: Male

DRUGS (1)
  1. INTRON A (INTERFERON ALFA-2B RECOMBINANT) INJECTABLE [Suspect]
     Dosage: 3 MIU 3X WEEK SUBCUTANEOUS
     Route: 058
     Dates: start: 20051028

REACTIONS (1)
  - HYPERKALAEMIA [None]
